FAERS Safety Report 17146856 (Version 1)
Quarter: 2019Q4

REPORT INFORMATION
  Report Type: Spontaneous
  Country: FR (occurrence: FR)
  Receive Date: 20191212
  Receipt Date: 20191212
  Transmission Date: 20200122
  Serious: Yes (Hospitalization)
  Sender: FDA-Public Use
  Company Number: FR-ACCORD-165099

PATIENT
  Age: 79 Year
  Sex: Male
  Weight: 78 kg

DRUGS (14)
  1. DIFFU K [Concomitant]
     Active Substance: POTASSIUM CHLORIDE
  2. LEVOCARNIL [Concomitant]
     Active Substance: LEVOCARNITINE
     Dosage: 100 MG / ML
  3. KARDEGIC [Concomitant]
     Active Substance: ASPIRIN DL-LYSINE
     Dosage: 75 MG
  4. CALCIPARINE [Concomitant]
     Active Substance: HEPARIN CALCIUM
  5. MIRCERA [Concomitant]
     Active Substance: METHOXY POLYETHYLENE GLYCOL-EPOETIN BETA
  6. ATORVASTATIN/ATORVASTATIN CALCIUM [Suspect]
     Active Substance: ATORVASTATIN CALCIUM
     Indication: DYSLIPIDAEMIA
     Route: 048
     Dates: start: 20191014, end: 20191107
  7. LASILIX [Concomitant]
     Active Substance: FUROSEMIDE
  8. UVEDOSE [Concomitant]
     Active Substance: CHOLECALCIFEROL
     Dosage: 100,000 IU,
  9. ALLOPURINOL. [Concomitant]
     Active Substance: ALLOPURINOL
     Indication: HYPERURICAEMIA
     Route: 048
     Dates: end: 20191023
  10. PARACETAMOL [Concomitant]
     Active Substance: ACETAMINOPHEN
  11. PANTOPRAZOLE [Suspect]
     Active Substance: PANTOPRAZOLE
     Indication: HAEMORRHAGE PROPHYLAXIS
     Route: 048
     Dates: start: 20191014, end: 20191107
  12. ISOPHANE INSULIN [Concomitant]
     Active Substance: INSULIN NOS
  13. IRBESARTAN. [Concomitant]
     Active Substance: IRBESARTAN
  14. IMOVANE [Concomitant]
     Active Substance: ZOPICLONE
     Dosage: 7.5 MG

REACTIONS (2)
  - Neutropenia [Recovered/Resolved]
  - Off label use [Unknown]

NARRATIVE: CASE EVENT DATE: 20191023
